FAERS Safety Report 7297157-4 (Version None)
Quarter: 2011Q1

REPORT INFORMATION
  Report Type: 
  Country: None (occurrence: None)
  Receive Date: 20110216
  Receipt Date: 20101003
  Transmission Date: 20110831
  Serious: No
  Sender: FDA-Public Use
  Company Number: US-PFIZER INC-2010110664

PATIENT
  Sex: Female
  Weight: 52 kg

DRUGS (7)
  1. TYLENOL PM [Concomitant]
     Dosage: UNK
  2. XANAX [Suspect]
     Dosage: 2 MG, UNK
  3. PRISTIQ [Suspect]
     Dosage: 50 MG, DAILY
     Dates: start: 20100701
  4. PRISTIQ [Suspect]
     Dosage: 50 MG, 3X/DAY
     Dates: start: 20100101
  5. PRISTIQ [Suspect]
     Dosage: 150 MG, 1X/DAY
  6. PRISTIQ [Suspect]
     Dosage: 100 MG,DAILY
     Dates: start: 20100701
  7. ADVIL PM [Suspect]
     Dosage: UNK

REACTIONS (18)
  - AGITATION [None]
  - SEDATION [None]
  - ANXIETY [None]
  - FEELING OF BODY TEMPERATURE CHANGE [None]
  - NERVOUSNESS [None]
  - DRY MOUTH [None]
  - MENSTRUATION IRREGULAR [None]
  - INSOMNIA [None]
  - PHOTOSENSITIVITY REACTION [None]
  - DIZZINESS [None]
  - ENERGY INCREASED [None]
  - DRUG INEFFECTIVE [None]
  - VOMITING [None]
  - TACHYPHRENIA [None]
  - FATIGUE [None]
  - TREMOR [None]
  - FEELING ABNORMAL [None]
  - EUPHORIC MOOD [None]
